FAERS Safety Report 8715188 (Version 6)
Quarter: 2013Q4

REPORT INFORMATION
  Report Type: Report from Study
  Country: JP (occurrence: JP)
  Receive Date: 20120809
  Receipt Date: 20131017
  Transmission Date: 20140711
  Serious: Yes (Other)
  Sender: FDA-Public Use
  Company Number: JP-PFIZER INC-2012190087

PATIENT
  Age: 63 Year
  Sex: Male
  Weight: 50.6 kg

DRUGS (4)
  1. XALKORI [Suspect]
     Indication: NON-SMALL CELL LUNG CANCER
     Dosage: 250 MG, 2X/DAY
     Route: 048
     Dates: start: 20120614, end: 20120619
  2. NEXIUM [Concomitant]
     Dosage: 20 MG, 1X/DAY
     Route: 048
     Dates: start: 20120404, end: 20120824
  3. FEBURIC [Concomitant]
     Dosage: 20 MG, 1X/DAY
     Route: 048
     Dates: start: 20120505
  4. MAGMITT [Concomitant]
     Dosage: 330 MG, 3X/DAY
     Route: 048
     Dates: start: 20120525

REACTIONS (1)
  - Hyponatraemia [Recovering/Resolving]
